FAERS Safety Report 23905000 (Version 1)
Quarter: 2024Q2

REPORT INFORMATION
  Report Type: Spontaneous
  Country: FR (occurrence: FR)
  Receive Date: 20240527
  Receipt Date: 20240527
  Transmission Date: 20240716
  Serious: Yes (Hospitalization, Other)
  Sender: FDA-Public Use
  Company Number: FR-009507513-2405FRA006710

PATIENT
  Age: 73 Year
  Sex: Female
  Weight: 52 kg

DRUGS (12)
  1. KEYTRUDA [Suspect]
     Active Substance: PEMBROLIZUMAB
     Indication: Endometrial adenocarcinoma
     Dosage: 25 MG/ML PER COURSE
     Route: 042
     Dates: start: 20221108, end: 20240109
  2. LENVATINIB MESYLATE [Suspect]
     Active Substance: LENVATINIB MESYLATE
     Indication: Endometrial adenocarcinoma
     Dosage: 1 CAPSULE, QD
     Route: 048
     Dates: start: 2022
  3. XARELTO [Concomitant]
     Active Substance: RIVAROXABAN
  4. ATARAX [Concomitant]
     Active Substance: HYDROXYZINE HYDROCHLORIDE
  5. KARDEGIC [Concomitant]
     Active Substance: ASPIRIN DL-LYSINE
  6. POTASSIUM CHLORIDE [Concomitant]
     Active Substance: POTASSIUM CHLORIDE
  7. PREDNISOLONE SODIUM METAZOATE [Concomitant]
     Active Substance: PREDNISOLONE SODIUM METAZOATE
  8. FUROSEMIDE [Concomitant]
     Active Substance: FUROSEMIDE
  9. JARDIANCE [Concomitant]
     Active Substance: EMPAGLIFLOZIN
  10. LEVOTHYROXINE [Concomitant]
     Active Substance: LEVOTHYROXINE\LEVOTHYROXINE SODIUM
  11. ALDACTONE [Concomitant]
     Active Substance: SPIRONOLACTONE
  12. PANTOPRAZOLE [Concomitant]
     Active Substance: PANTOPRAZOLE

REACTIONS (2)
  - Cardiogenic shock [Recovering/Resolving]
  - Heart failure with reduced ejection fraction [Recovering/Resolving]

NARRATIVE: CASE EVENT DATE: 20240126
